FAERS Safety Report 9071917 (Version 1)
Quarter: 2013Q1

REPORT INFORMATION
  Report Type: Spontaneous
  Country: ES (occurrence: ES)
  Receive Date: 20130129
  Receipt Date: 20130129
  Transmission Date: 20140127
  Serious: Yes (Other)
  Sender: FDA-Public Use
  Company Number: ES-ROCHE-1184916

PATIENT
  Age: 61 Year
  Sex: Male

DRUGS (5)
  1. XOLAIR [Suspect]
     Indication: ASTHMA
     Route: 058
     Dates: start: 201001
  2. SIMVASTATIN [Concomitant]
  3. AVAMYS [Concomitant]
  4. BUDESONIDE/FORMOTEROL FUMARATE [Concomitant]
  5. EBASTINE [Concomitant]

REACTIONS (1)
  - Blood creatinine increased [Not Recovered/Not Resolved]
